FAERS Safety Report 25201535 (Version 1)
Quarter: 2025Q2

REPORT INFORMATION
  Report Type: Spontaneous
  Country: KR (occurrence: KR)
  Receive Date: 20250416
  Receipt Date: 20250416
  Transmission Date: 20250717
  Serious: Yes (Other)
  Sender: BAXTER
  Company Number: KR-BAXTER-2025BAX013811

PATIENT

DRUGS (1)
  1. DOXORUBICIN HYDROCHLORIDE [Suspect]
     Active Substance: DOXORUBICIN HYDROCHLORIDE
     Indication: Neoplasm malignant
     Route: 065

REACTIONS (1)
  - Recurrent cancer [Unknown]
